FAERS Safety Report 26186871 (Version 1)
Quarter: 2025Q4

REPORT INFORMATION
  Report Type: Spontaneous
  Country: US (occurrence: None)
  Receive Date: 20251220
  Receipt Date: 20251220
  Transmission Date: 20260119
  Serious: Yes (Other)
  Sender: FDA-CTU
  Company Number: None

PATIENT
  Age: 63 Year
  Sex: Male

DRUGS (1)
  1. VENCLEXTA [Suspect]
     Active Substance: VENETOCLAX
     Dosage: FREQUENCY : DAILY;
     Route: 048

REACTIONS (5)
  - Memory impairment [None]
  - Speech disorder [None]
  - Insomnia [None]
  - Paraesthesia [None]
  - Fatigue [None]
